FAERS Safety Report 9010168 (Version 1)
Quarter: 2013Q1

REPORT INFORMATION
  Report Type: Spontaneous
  Country: BR (occurrence: BR)
  Receive Date: 20130110
  Receipt Date: 20130110
  Transmission Date: 20140127
  Serious: Yes (Other)
  Sender: FDA-Public Use
  Company Number: PHHY2013BR001785

PATIENT
  Sex: Male
  Weight: 2.86 kg

DRUGS (4)
  1. FORASEQ [Suspect]
     Dosage: 1 DF, BID (1 CAPSULE OF EACH TREATMENT, TWICE DAILY)
  2. FORASEQ [Suspect]
     Dosage: 1 DF, QD
  3. AMINOPHYLLINE [Concomitant]
  4. CORTISONE [Concomitant]

REACTIONS (2)
  - Premature baby [Unknown]
  - Foetal exposure during pregnancy [Unknown]
